FAERS Safety Report 18312790 (Version 1)
Quarter: 2020Q3

REPORT INFORMATION
  Report Type: Spontaneous
  Country: US (occurrence: US)
  Receive Date: 20200924
  Receipt Date: 20200924
  Transmission Date: 20201103
  Serious: Yes (Other)
  Sender: FDA-Public Use
  Company Number: None

PATIENT
  Age: 57 Year
  Sex: Female

DRUGS (8)
  1. CALCIUM [Concomitant]
     Active Substance: CALCIUM
  2. OMEGA 3 [Concomitant]
     Active Substance: OMEGA-3 FATTY ACIDS
  3. LEVOTHYROXINE. [Concomitant]
     Active Substance: LEVOTHYROXINE
  4. MULTI? VITAMIN [Concomitant]
  5. COENZYME Q10 [Concomitant]
     Active Substance: DIETARY SUPPLEMENT\UBIDECARENONE
  6. QUININE?SULFATE 324MG CAPSULE [Suspect]
     Active Substance: QUININE SULFATE
     Indication: BABESIOSIS
     Dosage: ?          QUANTITY1?:2 DF DOSAGE FORM;  WITH FOOD AND WATER?
     Route: 048
     Dates: end: 20200808
  7. VIT D [Concomitant]
     Active Substance: VITAMIN D NOS
  8. CLINDAMYCIN HCL [Suspect]
     Active Substance: CLINDAMYCIN HYDROCHLORIDE
     Indication: BABESIOSIS
     Dosage: ?          QUANTITY:2 DF DOSAGE FORM;?
     Route: 048
     Dates: start: 20200807, end: 20200808

REACTIONS (9)
  - Ear discomfort [None]
  - Vomiting [None]
  - Dizziness [None]
  - Tremor [None]
  - Diarrhoea haemorrhagic [None]
  - Hyperhidrosis [None]
  - Retching [None]
  - Oral disorder [None]
  - Dysgeusia [None]

NARRATIVE: CASE EVENT DATE: 20200807
